FAERS Safety Report 8328074-6 (Version None)
Quarter: 2012Q2

REPORT INFORMATION
  Report Type: 
  Country: None (occurrence: None)
  Receive Date: 20120430
  Receipt Date: 20120417
  Transmission Date: 20120825
  Serious: Yes (Death, Other)
  Sender: FDA-Public Use
  Company Number: JP-2012-14639

PATIENT
  Age: 84 Year
  Sex: Female
  Weight: 35 kg

DRUGS (4)
  1. LOSARTAN POTASSIUM [Concomitant]
  2. SAMSCA [Suspect]
     Indication: FLUID RETENTION
     Dosage: 7.5 MG MILLIGRAM(S), QAM, ORAL
     Route: 048
     Dates: start: 20120118, end: 20120122
  3. ALDACTONE [Concomitant]
  4. LASIX [Concomitant]

REACTIONS (11)
  - NUTRITIONAL CONDITION ABNORMAL [None]
  - CONDITION AGGRAVATED [None]
  - PLEURAL EFFUSION [None]
  - THERAPEUTIC RESPONSE DECREASED [None]
  - CONCOMITANT DISEASE AGGRAVATED [None]
  - DECREASED ACTIVITY [None]
  - CARDIAC FAILURE [None]
  - DEMENTIA [None]
  - DECREASED APPETITE [None]
  - ACTIVITIES OF DAILY LIVING IMPAIRED [None]
  - HYPOPROTEINAEMIA [None]
